FAERS Safety Report 24062183 (Version 2)
Quarter: 2024Q3

REPORT INFORMATION
  Report Type: Spontaneous
  Country: CH (occurrence: CH)
  Receive Date: 20240708
  Receipt Date: 20240801
  Transmission Date: 20241017
  Serious: Yes (Other)
  Sender: BAUSCH AND LOMB
  Company Number: CH-BAUSCH-BL-2024-010303

PATIENT
  Age: 6 Year
  Sex: Female

DRUGS (1)
  1. ALBUTEROL [Suspect]
     Active Substance: ALBUTEROL
     Indication: Hypoventilation
     Dosage: 12 PUSHES INHALED
     Route: 055

REACTIONS (2)
  - Hypokalaemia [Recovered/Resolved]
  - Paralysis [Recovered/Resolved]
